FAERS Safety Report 23769203 (Version 2)
Quarter: 2024Q2

REPORT INFORMATION
  Report Type: Spontaneous
  Country: CN (occurrence: CN)
  Receive Date: 20240422
  Receipt Date: 20240425
  Transmission Date: 20240716
  Serious: Yes (Hospitalization)
  Sender: FDA-Public Use
  Company Number: CN-GLAXOSMITHKLINE-CN2024APC048505

PATIENT

DRUGS (2)
  1. LAMOTRIGINE [Suspect]
     Active Substance: LAMOTRIGINE
     Indication: Epilepsy
     Dosage: UNK, 1 TABLET,QD
     Route: 048
     Dates: start: 20240331, end: 20240410
  2. VALPROATE SODIUM [Concomitant]
     Active Substance: VALPROATE SODIUM
     Indication: Epilepsy
     Dosage: UNK, QD, 1 TABLET
     Route: 048
     Dates: start: 20220501, end: 20240410

REACTIONS (10)
  - Dermatitis [Recovering/Resolving]
  - Rash papular [Recovering/Resolving]
  - Scratch [Recovering/Resolving]
  - Oral disorder [Recovering/Resolving]
  - Genital disorder [Recovering/Resolving]
  - Scab [Recovering/Resolving]
  - Body temperature increased [Recovering/Resolving]
  - Erythema [Recovering/Resolving]
  - Rash [Recovering/Resolving]
  - Pruritus [Recovering/Resolving]

NARRATIVE: CASE EVENT DATE: 20240402
